FAERS Safety Report 8259158-9 (Version None)
Quarter: 2012Q2

REPORT INFORMATION
  Report Type: 
  Country: None (occurrence: None)
  Receive Date: 20120404
  Receipt Date: 20120326
  Transmission Date: 20120825
  Serious: Yes (Other)
  Sender: FDA-Public Use
  Company Number: PHHY2012CA026599

PATIENT
  Age: 57 Year
  Sex: Female

DRUGS (1)
  1. BUFFERIN [Suspect]
     Indication: RHEUMATOID ARTHRITIS
     Dosage: 2 DF, 3-4 TIMES DAILY
     Route: 048
     Dates: start: 19790101

REACTIONS (2)
  - INCORRECT DRUG ADMINISTRATION DURATION [None]
  - ASTHMA [None]
